FAERS Safety Report 4320736-0 (Version None)
Quarter: 2004Q1

REPORT INFORMATION
  Report Type: 
  Country: None (occurrence: None)
  Receive Date: 20040322
  Receipt Date: 20040308
  Transmission Date: 20041129
  Serious: Yes (Hospitalization, Disabling)
  Sender: FDA-Public Use
  Company Number: 200413075GDDC

PATIENT
  Age: 39 Year
  Sex: Female

DRUGS (1)
  1. DAONIL [Suspect]
     Indication: DIABETES MELLITUS
     Dosage: DOSE: UNK
     Route: 048
     Dates: start: 19980101, end: 20010101

REACTIONS (5)
  - ARTERIAL STENOSIS [None]
  - MALAISE [None]
  - NAUSEA [None]
  - SYNCOPE [None]
  - VERTIGO [None]
